FAERS Safety Report 16207803 (Version 2)
Quarter: 2019Q2

REPORT INFORMATION
  Report Type: Spontaneous
  Country: MY (occurrence: MY)
  Receive Date: 20190417
  Receipt Date: 20190419
  Transmission Date: 20190711
  Serious: Yes (Hospitalization)
  Sender: FDA-Public Use
  Company Number: MY-GLAXOSMITHKLINE-MY2019GSK066218

PATIENT
  Age: 60 Year
  Sex: Female

DRUGS (5)
  1. ZINNAT [Suspect]
     Active Substance: CEFUROXIME
     Indication: DEBRIDEMENT
     Dosage: 500 MG, BID
     Route: 048
     Dates: start: 20190410, end: 20190410
  2. PLENDIL [Concomitant]
     Active Substance: FELODIPINE
     Indication: HYPERTENSION
     Dosage: 5 MG, UNK
     Route: 048
  3. ZINNAT [Suspect]
     Active Substance: CEFUROXIME
     Indication: WOUND CLOSURE
  4. CONCOR [Concomitant]
     Active Substance: BISOPROLOL FUMARATE
     Indication: HYPERTENSION
     Dosage: 2.5 MG, UNK
     Route: 048
  5. ROCEPHIN [Suspect]
     Active Substance: CEFTRIAXONE SODIUM
     Indication: PROPHYLAXIS
     Dosage: 2 G, SINGLE
     Route: 042
     Dates: start: 20190410, end: 20190410

REACTIONS (4)
  - Flushing [Recovered/Resolved]
  - Chills [Recovered/Resolved]
  - Rash pruritic [Recovered/Resolved]
  - Generalised erythema [Recovered/Resolved]

NARRATIVE: CASE EVENT DATE: 20190410
